FAERS Safety Report 12488985 (Version 1)
Quarter: 2016Q2

REPORT INFORMATION
  Report Type: Spontaneous
  Country: FR (occurrence: FR)
  Receive Date: 20160622
  Receipt Date: 20160622
  Transmission Date: 20160815
  Serious: Yes (Hospitalization)
  Sender: FDA-Public Use
  Company Number: FR-SEPTODONT-201603405

PATIENT
  Age: 7 Year
  Sex: Male

DRUGS (1)
  1. DELTAZINE ADR?NALIN?E, SOLUTION INJECTABLE ? USAGE DENTAIRE [Suspect]
     Active Substance: ARTICAINE HYDROCHLORIDE\EPINEPHRINE BITARTRATE
     Indication: LOCAL ANAESTHESIA
     Dosage: 5 MG/KG
     Route: 004
     Dates: start: 20160511, end: 20160511

REACTIONS (7)
  - Altered state of consciousness [Recovered/Resolved]
  - Dyskinesia [Recovered/Resolved]
  - Tongue discolouration [Recovered/Resolved]
  - Oculogyric crisis [Recovered/Resolved]
  - Facial paresis [Recovered/Resolved]
  - Disturbance in attention [Recovered/Resolved]
  - Headache [Recovered/Resolved]

NARRATIVE: CASE EVENT DATE: 20160511
